FAERS Safety Report 5722942-7 (Version None)
Quarter: 2008Q2

REPORT INFORMATION
  Report Type: 
  Country: None (occurrence: None)
  Receive Date: 20080429
  Receipt Date: 20080429
  Transmission Date: 20081010
  Serious: Yes (Disabling)
  Sender: FDA-Public Use
  Company Number: None

PATIENT
  Age: 54 Year
  Sex: Female
  Weight: 75.7507 kg

DRUGS (1)
  1. CLINDESSE [Suspect]
     Indication: VAGINITIS BACTERIAL
     Dosage: ONE DOSE ONE TIME VAG
     Route: 067
     Dates: start: 20080428, end: 20080428

REACTIONS (3)
  - CONTRAINDICATION TO MEDICAL TREATMENT [None]
  - DRUG PRESCRIBING ERROR [None]
  - MEDICATION ERROR [None]
